FAERS Safety Report 12146408 (Version 1)
Quarter: 2016Q1

REPORT INFORMATION
  Report Type: Spontaneous
  Country: CN (occurrence: CN)
  Receive Date: 20160304
  Receipt Date: 20160304
  Transmission Date: 20160526
  Serious: Yes (Other)
  Sender: FDA-Public Use
  Company Number: CN-SEBELA IRELAND LIMITED-2016SEB00042

PATIENT
  Age: 61 Year
  Sex: Male

DRUGS (3)
  1. METFORMIN [Concomitant]
     Active Substance: METFORMIN HYDROCHLORIDE
  2. ALLOPURINOL. [Suspect]
     Active Substance: ALLOPURINOL
     Indication: HYPERURICAEMIA
     Dosage: 100 MG, 1X/DAY
     Route: 065
  3. GLICLAZIDE [Concomitant]
     Active Substance: GLICLAZIDE

REACTIONS (4)
  - Liver disorder [Unknown]
  - Renal impairment [Unknown]
  - Stevens-Johnson syndrome [Unknown]
  - Diabetes mellitus [Unknown]
